FAERS Safety Report 8643980 (Version 2)
Quarter: 2014Q3

REPORT INFORMATION
  Report Type: Spontaneous
  Country: US (occurrence: US)
  Receive Date: 20120629
  Receipt Date: 20140911
  Transmission Date: 20150326
  Serious: Yes (Hospitalization)
  Sender: FDA-Public Use
  Company Number: US-GLAXOSMITHKLINE-A0731559A

PATIENT
  Sex: Female
  Weight: 94.1 kg

DRUGS (4)
  1. AVANDAMET [Suspect]
     Active Substance: METFORMIN HYDROCHLORIDE\ROSIGLITAZONE MALEATE
     Indication: TYPE 2 DIABETES MELLITUS
     Route: 048
     Dates: start: 20030304, end: 20050331
  2. AVANDIA [Suspect]
     Active Substance: ROSIGLITAZONE MALEATE
     Indication: TYPE 2 DIABETES MELLITUS
     Dosage: 4MG PER DAY
     Route: 048
     Dates: start: 200303, end: 20050610
  3. ZOCOR [Concomitant]
     Active Substance: SIMVASTATIN
  4. GLIPIZIDE. [Concomitant]
     Active Substance: GLIPIZIDE

REACTIONS (3)
  - Cardiac failure congestive [Unknown]
  - Myocardial infarction [Unknown]
  - Arteriosclerosis coronary artery [Unknown]
